FAERS Safety Report 17617052 (Version 1)
Quarter: 2020Q2

REPORT INFORMATION
  Report Type: Report from Study
  Country: CO (occurrence: CO)
  Receive Date: 20200402
  Receipt Date: 20200402
  Transmission Date: 20200713
  Serious: Yes (Life-Threatening, Other)
  Sender: FDA-Public Use
  Company Number: CO-AMGEN-COLSP2020051582

PATIENT
  Sex: Female

DRUGS (2)
  1. FILGRASTIM [Suspect]
     Active Substance: FILGRASTIM
     Indication: PRODUCT USED FOR UNKNOWN INDICATION
     Dosage: UNK
     Route: 065
  2. TRASTUZUMAB. [Suspect]
     Active Substance: TRASTUZUMAB
     Indication: PRODUCT USED FOR UNKNOWN INDICATION
     Dosage: UNK
     Route: 065

REACTIONS (11)
  - Vision blurred [Unknown]
  - Restlessness [Unknown]
  - Anaphylactic shock [Unknown]
  - Drug intolerance [Unknown]
  - Sensory disturbance [Unknown]
  - Swelling [Unknown]
  - Neuritis [Unknown]
  - Insomnia [Unknown]
  - Intermittent claudication [Unknown]
  - Adnexa uteri pain [Unknown]
  - Renal pain [Unknown]
